FAERS Safety Report 23108596 (Version 1)
Quarter: 2023Q4

REPORT INFORMATION
  Report Type: Spontaneous
  Country: GB (occurrence: GB)
  Receive Date: 20231026
  Receipt Date: 20231026
  Transmission Date: 20240109
  Serious: Yes (Life-Threatening, Other)
  Sender: FDA-Public Use
  Company Number: GB-002147023-NVSC2023GB228460

PATIENT
  Sex: Female

DRUGS (2)
  1. PIQRAY [Suspect]
     Active Substance: ALPELISIB
     Indication: Product used for unknown indication
     Dosage: FIRST TITRATED DOSE, CYCLIC
     Route: 065
  2. PIQRAY [Suspect]
     Active Substance: ALPELISIB
     Dosage: SECOND DOSE, CYCLIC
     Route: 065

REACTIONS (2)
  - Hypersensitivity [Recovering/Resolving]
  - Rash [Recovered/Resolved]
